FAERS Safety Report 6978362-0 (Version None)
Quarter: 2010Q3

REPORT INFORMATION
  Report Type: 
  Country: None (occurrence: None)
  Receive Date: 20100913
  Receipt Date: 20100902
  Transmission Date: 20110219
  Serious: Yes (Hospitalization)
  Sender: FDA-Public Use
  Company Number: PHHY2009DE42160

PATIENT
  Sex: Male

DRUGS (1)
  1. EXELON [Suspect]
     Dosage: 4.6 MG/24 HRS
     Route: 062
     Dates: start: 20090707, end: 20090917

REACTIONS (1)
  - AGGRESSION [None]
